FAERS Safety Report 7077699-7 (Version None)
Quarter: 2010Q4

REPORT INFORMATION
  Report Type: 
  Country: None (occurrence: None)
  Receive Date: 20101101
  Receipt Date: 20101020
  Transmission Date: 20110411
  Serious: Yes (Other)
  Sender: FDA-Public Use
  Company Number: US-ELI_LILLY_AND_COMPANY-US201005004730

PATIENT
  Sex: Female

DRUGS (1)
  1. FORTEO [Suspect]
     Indication: OSTEOPOROSIS
     Dosage: 20 UG, DAILY (1/D)
     Dates: start: 20090901

REACTIONS (6)
  - BONE PAIN [None]
  - FALL [None]
  - HIP FRACTURE [None]
  - INJECTION SITE HAEMATOMA [None]
  - MUSCULOSKELETAL CHEST PAIN [None]
  - WRIST FRACTURE [None]
